FAERS Safety Report 5840293-7 (Version None)
Quarter: 2008Q3

REPORT INFORMATION
  Report Type: 
  Country: None (occurrence: None)
  Receive Date: 20080808
  Receipt Date: 20080808
  Transmission Date: 20090109
  Serious: Yes (Other)
  Sender: FDA-Public Use
  Company Number: None

PATIENT
  Age: 67 Year
  Sex: Female
  Weight: 64.4108 kg

DRUGS (3)
  1. ACEBUTOLOL [Suspect]
     Indication: EXTRASYSTOLES
     Dosage: 200MG ONCE A DAY PO
     Route: 048
     Dates: start: 20080401, end: 20080807
  2. ACEBUTOLOL [Suspect]
     Indication: HYPERTENSION
     Dosage: 200MG ONCE A DAY PO
     Route: 048
     Dates: start: 20080401, end: 20080807
  3. LORAZEPAM [Suspect]
     Indication: ANXIETY
     Dosage: 1MG THREE TIMES A DAY PO, ABOUT 3 YEARS
     Route: 048

REACTIONS (5)
  - BLOOD PRESSURE INCREASED [None]
  - DRUG EFFECT DECREASED [None]
  - HEART RATE DECREASED [None]
  - HEART RATE IRREGULAR [None]
  - PHARMACEUTICAL PRODUCT COMPLAINT [None]
